FAERS Safety Report 9522057 (Version 2)
Quarter: 2013Q3

REPORT INFORMATION
  Report Type: Report from Study
  Country: CA (occurrence: CA)
  Receive Date: 20130913
  Receipt Date: 20130913
  Transmission Date: 20140515
  Serious: Yes (Other)
  Sender: FDA-Public Use
  Company Number: CA-ROCHE-1189091

PATIENT
  Age: 73 Year
  Sex: Male
  Weight: 90.7 kg

DRUGS (11)
  1. RITUXAN [Suspect]
     Indication: RHEUMATOID ARTHRITIS
     Dosage: DAY 1 AND 15
     Route: 042
     Dates: start: 20100624
  2. TYLENOL ARTHRITIS [Suspect]
     Indication: RHEUMATOID ARTHRITIS
     Route: 048
  3. PREDNISONE [Concomitant]
  4. AVODART [Concomitant]
  5. WARFARIN [Concomitant]
  6. FUROSEMIDE [Concomitant]
  7. DILTIAZEM [Concomitant]
  8. ADVAIR [Concomitant]
     Indication: PULMONARY OEDEMA
     Route: 055
  9. DIPHENHYDRAMINE HCL [Concomitant]
     Indication: PREMEDICATION
     Route: 048
     Dates: start: 20100624
  10. ACETAMINOPHEN [Concomitant]
     Indication: PREMEDICATION
     Route: 048
     Dates: start: 20100624
  11. METHYLPREDNISOLONE [Concomitant]
     Indication: PREMEDICATION
     Route: 042
     Dates: start: 20100624

REACTIONS (8)
  - Osteoporosis [Unknown]
  - Lower respiratory tract infection [Not Recovered/Not Resolved]
  - Influenza [Recovering/Resolving]
  - Gout [Not Recovered/Not Resolved]
  - Joint effusion [Recovering/Resolving]
  - Mobility decreased [Recovering/Resolving]
  - Musculoskeletal stiffness [Recovering/Resolving]
  - Hyperhidrosis [Unknown]
